FAERS Safety Report 13511922 (Version 1)
Quarter: 2017Q2

REPORT INFORMATION
  Report Type: Spontaneous
  Country: ES (occurrence: ES)
  Receive Date: 20170504
  Receipt Date: 20170504
  Transmission Date: 20170830
  Serious: Yes (Hospitalization, Other)
  Sender: FDA-Public Use
  Company Number: ES-ASPEN PHARMA TRADING LIMITED US-AS-2017-003069

PATIENT
  Age: 5 Year
  Sex: Male

DRUGS (7)
  1. CYCLOPHOSPHAMIDE. [Interacting]
     Active Substance: CYCLOPHOSPHAMIDE
     Indication: PRECURSOR T-LYMPHOBLASTIC LYMPHOMA/LEUKAEMIA
     Route: 048
     Dates: start: 20170131, end: 20170131
  2. MESNA. [Concomitant]
     Active Substance: MESNA
     Indication: PRECURSOR T-LYMPHOBLASTIC LYMPHOMA/LEUKAEMIA
     Route: 042
     Dates: start: 20170131, end: 20170131
  3. ZOVIRAX 400 MG/5 ML [Concomitant]
     Indication: PROPHYLAXIS
     Dosage: STRENGTH: 400 MG/5 ML.?DOSAGE: 7.5 ML, 3 DOSAGE FORM ON UNKNOWN FREQUENCY
     Route: 048
     Dates: start: 20160726
  4. HYDROCORTISONE. [Interacting]
     Active Substance: HYDROCORTISONE
     Indication: PRECURSOR T-LYMPHOBLASTIC LYMPHOMA/LEUKAEMIA
     Route: 048
     Dates: start: 20170131, end: 20170131
  5. SEPTRIN 8MG/40MG/ML [Concomitant]
     Indication: PROPHYLAXIS
     Dosage: STRENGTH: 8MG/40MG/ML.?DOSAGE: 13 ML, 2 DOSAGE FORM ON UNKNOWN FREQUENCY
     Route: 048
     Dates: start: 20160726
  6. OMEPRAZOL CINFAMED 20 MG [Concomitant]
     Indication: PRODUCT USED FOR UNKNOWN INDICATION
  7. TIOGUANINE ASPEN 40 MG [Suspect]
     Active Substance: THIOGUANINE
     Indication: PRECURSOR T-LYMPHOBLASTIC LYMPHOMA/LEUKAEMIA
     Route: 048
     Dates: start: 20170131, end: 20170131

REACTIONS (5)
  - Septic shock [Recovered/Resolved]
  - Cystitis klebsiella [Recovered/Resolved]
  - Drug interaction [Unknown]
  - Influenza virus test positive [None]
  - Respiratory syncytial virus test positive [Recovered/Resolved]

NARRATIVE: CASE EVENT DATE: 20170131
